FAERS Safety Report 13279265 (Version 1)
Quarter: 2017Q1

REPORT INFORMATION
  Report Type: Report from Study
  Country: US (occurrence: US)
  Receive Date: 20170228
  Receipt Date: 20170228
  Transmission Date: 20170428
  Serious: Yes (Hospitalization, Other)
  Sender: FDA-Public Use
  Company Number: US-AMAG PHARMACEUTICALS, INC.-AMAG201600399

PATIENT

DRUGS (4)
  1. TYLENOL [Concomitant]
     Active Substance: ACETAMINOPHEN
     Indication: PRODUCT USED FOR UNKNOWN INDICATION
     Route: 065
  2. METFORMIN [Concomitant]
     Active Substance: METFORMIN HYDROCHLORIDE
     Indication: GESTATIONAL DIABETES
     Dosage: 2500 MG, QD
     Route: 065
     Dates: start: 20160201, end: 20160316
  3. MAKENA [Suspect]
     Active Substance: HYDROXYPROGESTERONE CAPROATE
     Indication: PRODUCT USED FOR UNKNOWN INDICATION
     Dosage: 250 MG, WEEKLY
     Route: 030
     Dates: start: 20151104, end: 20160310
  4. PRENATAL VITAMINS [Concomitant]
     Active Substance: VITAMINS
     Indication: PREGNANCY
     Route: 065

REACTIONS (2)
  - Premature labour [Recovered/Resolved]
  - Premature delivery [Recovered/Resolved]

NARRATIVE: CASE EVENT DATE: 20160313
